FAERS Safety Report 5041264-3 (Version None)
Quarter: 2006Q2

REPORT INFORMATION
  Report Type: 
  Country: None (occurrence: None)
  Receive Date: 20060626
  Receipt Date: 20060612
  Transmission Date: 20061013
  Serious: Yes (Death)
  Sender: FDA-Public Use
  Company Number: US017812

PATIENT
  Sex: Female

DRUGS (1)
  1. PROVIGIL [Suspect]

REACTIONS (1)
  - MYOCARDIAL INFARCTION [None]
